FAERS Safety Report 7969791-7 (Version None)
Quarter: 2011Q4

REPORT INFORMATION
  Report Type: 
  Country: None (occurrence: None)
  Receive Date: 20111122
  Receipt Date: 20110815
  Transmission Date: 20120403
  Serious: No
  Sender: FDA-Public Use
  Company Number: PHEH2011US01722

PATIENT
  Age: 55 Year
  Sex: Female

DRUGS (1)
  1. GILENYA [Suspect]
     Indication: MULTIPLE SCLEROSIS
     Dosage: 0.5 MG, ONE CAPSULE EVERYDAY, ORAL
     Route: 048
     Dates: start: 20110309

REACTIONS (2)
  - FLATULENCE [None]
  - GASTROOESOPHAGEAL REFLUX DISEASE [None]
